FAERS Safety Report 8050129-4 (Version None)
Quarter: 2012Q1

REPORT INFORMATION
  Report Type: 
  Country: None (occurrence: None)
  Receive Date: 20120117
  Receipt Date: 20120112
  Transmission Date: 20120608
  Serious: Yes (Hospitalization, Other)
  Sender: FDA-Public Use
  Company Number: US-MERCK-1103USA02102

PATIENT
  Age: 64 Year
  Sex: Female
  Weight: 71 kg

DRUGS (5)
  1. FOSAMAX [Suspect]
     Route: 048
     Dates: start: 20010801, end: 20080601
  2. FOSAMAX [Suspect]
     Indication: OSTEOPOROSIS
     Route: 048
     Dates: start: 19960501, end: 20010801
  3. FOSAMAX [Suspect]
     Route: 048
     Dates: start: 20010801, end: 20080601
  4. FOSAMAX [Suspect]
     Indication: OSTEOPENIA
     Route: 048
     Dates: start: 19960501, end: 20010801
  5. ALENDRONATE SODIUM [Suspect]
     Route: 048
     Dates: start: 20080601, end: 20080901

REACTIONS (77)
  - ATAXIA [None]
  - HAEMORRHOIDS [None]
  - NEURALGIA [None]
  - SPINAL OSTEOARTHRITIS [None]
  - CATARACT [None]
  - RAYNAUD'S PHENOMENON [None]
  - TOOTH FRACTURE [None]
  - CERVICAL CORD COMPRESSION [None]
  - ADJUSTMENT DISORDER WITH DEPRESSED MOOD [None]
  - CEREBROVASCULAR DISORDER [None]
  - GLIOSIS [None]
  - NERVE COMPRESSION [None]
  - DIVERTICULUM [None]
  - OEDEMA PERIPHERAL [None]
  - SPINAL COLUMN STENOSIS [None]
  - TINNITUS [None]
  - POOR QUALITY SLEEP [None]
  - OTITIS MEDIA [None]
  - ORTHOSTATIC HYPOTENSION [None]
  - HYPERTENSION [None]
  - CONFUSIONAL STATE [None]
  - OSTEOARTHRITIS [None]
  - BACK PAIN [None]
  - MUSCULOSKELETAL PAIN [None]
  - EYE INFECTION [None]
  - STRESS [None]
  - BRONCHIAL HYPERREACTIVITY [None]
  - TOOTH DISORDER [None]
  - POLYDIPSIA [None]
  - PEPTIC ULCER [None]
  - DENTAL CARIES [None]
  - FALL [None]
  - GLUCOSE TOLERANCE IMPAIRED [None]
  - PAIN IN JAW [None]
  - IRRITABLE BOWEL SYNDROME [None]
  - COMPRESSION FRACTURE [None]
  - DEVICE FAILURE [None]
  - FRACTURE NONUNION [None]
  - LOW TURNOVER OSTEOPATHY [None]
  - SPINAL DISORDER [None]
  - INTERVERTEBRAL DISC PROTRUSION [None]
  - PAIN [None]
  - INTERVERTEBRAL DISC DEGENERATION [None]
  - FEMUR FRACTURE [None]
  - HAEMORRHAGIC ANAEMIA [None]
  - HIP FRACTURE [None]
  - DEAFNESS BILATERAL [None]
  - ALLERGIC RESPIRATORY SYMPTOM [None]
  - ANXIETY [None]
  - ARTHROPATHY [None]
  - RENAL CYST [None]
  - MYOCARDIAL ISCHAEMIA [None]
  - ISCHAEMIA [None]
  - HYPERLIPIDAEMIA [None]
  - HIATUS HERNIA [None]
  - JOINT DISLOCATION [None]
  - CHEST PAIN [None]
  - BLOOD CHOLESTEROL INCREASED [None]
  - CONTUSION [None]
  - ARTHRALGIA [None]
  - BRONCHITIS [None]
  - BUNDLE BRANCH BLOCK LEFT [None]
  - CAROTID ARTERY STENOSIS [None]
  - GASTRITIS [None]
  - NECK PAIN [None]
  - MACROCYTOSIS [None]
  - TEMPOROMANDIBULAR JOINT SYNDROME [None]
  - CARPAL TUNNEL SYNDROME [None]
  - PAIN IN EXTREMITY [None]
  - CERUMEN IMPACTION [None]
  - EXCORIATION [None]
  - ACUTE SINUSITIS [None]
  - VERTIGO POSITIONAL [None]
  - KYPHOSIS [None]
  - BRUXISM [None]
  - RADICULOPATHY [None]
  - COLON ADENOMA [None]
